FAERS Safety Report 24540231 (Version 1)
Quarter: 2024Q4

REPORT INFORMATION
  Report Type: Spontaneous
  Country: CN (occurrence: CN)
  Receive Date: 20241023
  Receipt Date: 20241023
  Transmission Date: 20250115
  Serious: Yes (Hospitalization)
  Sender: ABBVIE
  Company Number: CN-ABBVIE-5968745

PATIENT
  Age: 68 Year
  Sex: Female
  Weight: 60 kg

DRUGS (5)
  1. VENETOCLAX [Suspect]
     Active Substance: VENETOCLAX
     Indication: Leukaemia
     Dosage: 0.4 GRAM
     Route: 048
     Dates: start: 20240916, end: 20240923
  2. CYTARABINE [Suspect]
     Active Substance: CYTARABINE
     Indication: Leukaemia
     Dosage: 50 MILLIGRAM
     Route: 058
     Dates: start: 20240916, end: 20240922
  3. AZACITIDINE [Suspect]
     Active Substance: AZACITIDINE
     Indication: Leukaemia
     Dosage: 100 MILLIGRAM
     Route: 058
     Dates: start: 20240916, end: 20240922
  4. STERILE WATER [Suspect]
     Active Substance: WATER
     Indication: Leukaemia
     Dosage: 4 MILLILITER
     Route: 058
     Dates: start: 20240916, end: 20240922
  5. SORAFENIB [Concomitant]
     Active Substance: SORAFENIB
     Indication: Leukaemia
     Dosage: D1-14

REACTIONS (13)
  - Nausea [Recovering/Resolving]
  - Diarrhoea [Recovering/Resolving]
  - Dysphagia [Recovering/Resolving]
  - Vomiting [Recovering/Resolving]
  - Gastrooesophageal reflux disease [Unknown]
  - Dyspepsia [Unknown]
  - Decreased appetite [Unknown]
  - Abdominal distension [Unknown]
  - Abdominal discomfort [Unknown]
  - Abnormal faeces [Unknown]
  - Hypophagia [Unknown]
  - Feeding disorder [Recovering/Resolving]
  - Abdominal pain [Recovering/Resolving]

NARRATIVE: CASE EVENT DATE: 20240101
